FAERS Safety Report 7438166-1 (Version None)
Quarter: 2011Q2

REPORT INFORMATION
  Report Type: 
  Country: None (occurrence: None)
  Receive Date: 20110419
  Receipt Date: 20110406
  Transmission Date: 20111010
  Serious: Yes (Life-Threatening, Hospitalization)
  Sender: FDA-Public Use
  Company Number: 027232

PATIENT
  Sex: Male
  Weight: 106 kg

DRUGS (2)
  1. CIMZIA [Suspect]
     Indication: RHEUMATOID ARTHRITIS
     Dosage: (REALISTIC TRIAL), (200 MG 1X/2 WEEKS SUBCUTANEOUS)
     Route: 058
     Dates: start: 20100108, end: 20101101
  2. CIMZIA [Suspect]
     Indication: RHEUMATOID ARTHRITIS
     Dosage: (REALISTIC TRIAL), (200 MG 1X/2 WEEKS SUBCUTANEOUS)
     Route: 058
     Dates: start: 20090601

REACTIONS (8)
  - LYMPHOMA [None]
  - CEREBROVASCULAR ACCIDENT [None]
  - CELLULITIS [None]
  - METASTASIS [None]
  - BACK PAIN [None]
  - METASTASES TO CENTRAL NERVOUS SYSTEM [None]
  - VENOUS INSUFFICIENCY [None]
  - OSTEOPOROSIS [None]
